FAERS Safety Report 9122840 (Version 1)
Quarter: 2013Q1

REPORT INFORMATION
  Report Type: Spontaneous
  Country: US (occurrence: None)
  Receive Date: 20130225
  Receipt Date: 20130225
  Transmission Date: 20140127
  Serious: Yes (Death)
  Sender: FDA-Public Use
  Company Number: None

PATIENT
  Sex: 0

DRUGS (1)
  1. EVEROLIMUS [Suspect]
     Dosage: 10  MG          PO?PRIOR TO ADMIT,  UNKNOWN
     Route: 048

REACTIONS (1)
  - Respiratory failure [None]
